FAERS Safety Report 4882875-5 (Version None)
Quarter: 2006Q1

REPORT INFORMATION
  Report Type: 
  Country: None (occurrence: None)
  Receive Date: 20060118
  Receipt Date: 20060111
  Transmission Date: 20060701
  Serious: Yes (Life-Threatening, Other)
  Sender: FDA-Public Use
  Company Number: US-MERCK-0601USA01397

PATIENT
  Age: 38 Year
  Sex: Male

DRUGS (3)
  1. VYTORIN [Suspect]
     Indication: BLOOD CHOLESTEROL INCREASED
     Route: 048
  2. SINGULAIR [Concomitant]
     Route: 048
  3. CLARINEX [Concomitant]
     Route: 065

REACTIONS (3)
  - DYSPNOEA [None]
  - OEDEMA [None]
  - RASH [None]
